FAERS Safety Report 9534853 (Version 1)
Quarter: 2013Q2

REPORT INFORMATION
  Report Type: Spontaneous
  Country: JP (occurrence: None)
  Receive Date: 20130403
  Receipt Date: 20130403
  Transmission Date: 20140414
  Serious: Yes (Hospitalization)
  Sender: FDA-Public Use
  Company Number: US-2012-10667

PATIENT
  Age: 56 Year
  Sex: Female

DRUGS (1)
  1. BUSULFEX (BUSULFAN) INJECTION [Suspect]
     Route: 041
     Dates: start: 20120506, end: 20120507

REACTIONS (1)
  - Nausea [None]
